FAERS Safety Report 25795281 (Version 1)
Quarter: 2025Q3

REPORT INFORMATION
  Report Type: Spontaneous
  Country: US (occurrence: US)
  Receive Date: 20250912
  Receipt Date: 20250912
  Transmission Date: 20251021
  Serious: No
  Sender: ELI LILLY AND COMPANY
  Company Number: US-ELI_LILLY_AND_COMPANY-US202509010723

PATIENT
  Age: 72 Year
  Sex: Female

DRUGS (9)
  1. MOUNJARO [Interacting]
     Active Substance: TIRZEPATIDE
     Indication: Product used for unknown indication
     Route: 065
     Dates: start: 2024
  2. MOUNJARO [Interacting]
     Active Substance: TIRZEPATIDE
     Indication: Product used for unknown indication
     Route: 065
     Dates: start: 2024
  3. MOUNJARO [Interacting]
     Active Substance: TIRZEPATIDE
     Indication: Product used for unknown indication
     Route: 065
     Dates: start: 2024
  4. MOUNJARO [Interacting]
     Active Substance: TIRZEPATIDE
     Indication: Product used for unknown indication
     Route: 065
     Dates: start: 2024
  5. MOUNJARO [Interacting]
     Active Substance: TIRZEPATIDE
     Route: 065
  6. MOUNJARO [Interacting]
     Active Substance: TIRZEPATIDE
     Route: 065
  7. MOUNJARO [Interacting]
     Active Substance: TIRZEPATIDE
     Route: 065
  8. MOUNJARO [Interacting]
     Active Substance: TIRZEPATIDE
     Route: 065
  9. MIRTAZAPINE [Interacting]
     Active Substance: MIRTAZAPINE
     Indication: Anxiety
     Route: 065

REACTIONS (3)
  - Drug interaction [Unknown]
  - Increased appetite [Unknown]
  - Drug ineffective [Unknown]
